FAERS Safety Report 8419675-5 (Version None)
Quarter: 2012Q2

REPORT INFORMATION
  Report Type: 
  Country: None (occurrence: None)
  Receive Date: 20120607
  Receipt Date: 20120531
  Transmission Date: 20120825
  Serious: Yes (Hospitalization)
  Sender: FDA-Public Use
  Company Number: DE-UCBSA-049965

PATIENT
  Sex: Female
  Weight: 75 kg

DRUGS (32)
  1. ARAVA [Concomitant]
     Dates: start: 20111026
  2. PREDNISOLONE [Concomitant]
     Indication: RHEUMATOID ARTHRITIS
     Route: 048
     Dates: start: 20070101
  3. PREDNISOLONE [Concomitant]
     Dates: start: 20110517
  4. PANTOPRAZOLE [Concomitant]
     Indication: PROPHYLAXIS
     Dates: start: 20110216, end: 20110228
  5. DICLOFENAC [Concomitant]
     Dates: start: 20110401
  6. ARAVA [Concomitant]
     Indication: RHEUMATOID ARTHRITIS
     Dosage: FREQUENCY 1
     Route: 048
     Dates: start: 20091201, end: 20120101
  7. CIMZIA [Suspect]
     Indication: RHEUMATOID ARTHRITIS
     Dosage: NO OF DOSES RECEIVED-24
     Route: 058
     Dates: start: 20110224, end: 20120112
  8. ARAVA [Concomitant]
     Dates: start: 20091201, end: 20111026
  9. PREDNISOLONE [Concomitant]
     Dates: start: 20110315, end: 20110327
  10. PREDNISOLONE [Concomitant]
     Dates: start: 20110418, end: 20110516
  11. AMLODIPINE [Concomitant]
     Dosage: 5 MG: BIM
     Route: 048
     Dates: start: 20110101
  12. IRBESARTAN [Concomitant]
     Dates: start: 20110216, end: 20110224
  13. ERGOCALCIFEROL [Concomitant]
     Indication: OSTEOPOROSIS
     Route: 048
     Dates: start: 20110224
  14. LORAZEPAM [Concomitant]
     Dosage: 0.5MG TIS
     Dates: start: 20110701
  15. DICLOFENAC [Concomitant]
     Indication: PAIN
     Dosage: 75 MG EVERY DAY AFTERNOON
     Dates: start: 20110215, end: 20110225
  16. IRBESARTAN [Concomitant]
     Dates: start: 20110225
  17. LORAZEPAM [Concomitant]
     Indication: SLEEP DISORDER
     Dates: start: 20110301, end: 20110101
  18. ARAVA [Concomitant]
     Dosage: FREQUENCY 1
     Route: 048
     Dates: start: 20120120
  19. PREDNISOLONE [Concomitant]
     Dates: start: 20110226, end: 20110314
  20. PREDNISOLONE [Concomitant]
     Dates: start: 20110405, end: 20110417
  21. AMLODIPINE [Concomitant]
     Indication: HYPERTENSION
     Dates: start: 20110226, end: 20110227
  22. PNEUMOCOCCAL VACCINE [Concomitant]
     Dates: start: 20110223, end: 20110223
  23. PREDNISOLONE [Concomitant]
     Dates: start: 20110215, end: 20110215
  24. PREDNISOLONE [Concomitant]
     Dates: start: 20110216, end: 20110218
  25. PREDNISOLONE [Concomitant]
     Dates: start: 20110219, end: 20110225
  26. PREDNISOLONE [Concomitant]
     Dates: start: 20110328, end: 20110404
  27. CALCIUM CARBONATE [Concomitant]
     Indication: OSTEOPOROSIS
     Dosage: FREQUENCY 2
     Route: 048
     Dates: start: 20090101
  28. IRBESARTAN [Concomitant]
     Indication: HYPERTENSION
     Dosage: FREQUENCY-1
     Route: 048
     Dates: start: 20110226
  29. PREDNISOLONE [Concomitant]
     Dates: start: 20090514, end: 20110201
  30. AMLODIPINE [Concomitant]
     Dates: start: 20110228, end: 20110101
  31. IRBESARTAN [Concomitant]
     Indication: HYPERTENSION
     Dosage: FREQUENCY 2
     Route: 048
     Dates: start: 20090101
  32. MAGNESIUM [Concomitant]
     Indication: MUSCLE SPASMS
     Dates: start: 20110222

REACTIONS (3)
  - PSORIASIS [None]
  - SYSTEMIC LUPUS ERYTHEMATOSUS [None]
  - FUNGAL SKIN INFECTION [None]
